FAERS Safety Report 15902208 (Version 3)
Quarter: 2019Q1

REPORT INFORMATION
  Report Type: Report from Study
  Country: US (occurrence: US)
  Receive Date: 20190201
  Receipt Date: 20190206
  Transmission Date: 20190417
  Serious: Yes (Other)
  Sender: FDA-Public Use
  Company Number: US-SHIRE-US201902218

PATIENT
  Sex: Female
  Weight: 30.84 kg

DRUGS (3)
  1. VYVANSE [Suspect]
     Active Substance: LISDEXAMFETAMINE DIMESYLATE
     Indication: ATTENTION DEFICIT/HYPERACTIVITY DISORDER
     Dosage: 30 MICROGRAM, 1X/DAY:QD
     Route: 048
     Dates: start: 201805
  2. VYVANSE [Suspect]
     Active Substance: LISDEXAMFETAMINE DIMESYLATE
     Dosage: 30 MICROGRAM, 1X/DAY:QD
     Route: 048
     Dates: start: 201805
  3. SINGULAIR [Concomitant]
     Active Substance: MONTELUKAST SODIUM
     Indication: ASTHMA

REACTIONS (2)
  - Head titubation [Unknown]
  - Tourette^s disorder [Unknown]

NARRATIVE: CASE EVENT DATE: 2019
